FAERS Safety Report 16733144 (Version 4)
Quarter: 2025Q4

REPORT INFORMATION
  Report Type: Spontaneous
  Country: EU (occurrence: EU)
  Receive Date: 20190823
  Receipt Date: 20251225
  Transmission Date: 20260117
  Serious: Yes (Other)
  Sender: AUROBINDO
  Company Number: None

PATIENT
  Age: 17 Year
  Sex: Female

DRUGS (12)
  1. ACETAMINOPHEN [Suspect]
     Active Substance: ACETAMINOPHEN
     Indication: Product used for unknown indication
     Dosage: UNK
     Route: 065
  2. ACTIVATED CHARCOAL [Concomitant]
     Active Substance: ACTIVATED CHARCOAL
     Indication: Product used for unknown indication
     Dosage: 50 GRAM
     Route: 065
  3. ATROPINE [Concomitant]
     Active Substance: ATROPINE
     Indication: Product used for unknown indication
     Dosage: UNK
     Route: 065
  4. EPINEPHRINE [Concomitant]
     Active Substance: EPINEPHRINE
     Indication: Product used for unknown indication
     Dosage: UNK (0.15-0.3 ?G/KG/MIN)
     Route: 065
  5. EPINEPHRINE [Concomitant]
     Active Substance: EPINEPHRINE
     Dosage: UNK (UP TO 0.6 ?G/KG/MIN)
     Route: 065
  6. NOREPINEPHRINE BITARTRATE [Concomitant]
     Active Substance: NOREPINEPHRINE BITARTRATE
     Indication: Product used for unknown indication
     Dosage: UNK (0.1 ?G/KG/MIN)
     Route: 065
  7. SODIUM BICARBONATE [Concomitant]
     Active Substance: SODIUM BICARBONATE
     Indication: Product used for unknown indication
     Dosage: UNK (1 MEQ/KG/H)
     Route: 065
  8. DOPAMINE [Concomitant]
     Active Substance: DOPAMINE HYDROCHLORIDE
     Indication: Product used for unknown indication
     Dosage: UNK (10 ?G/KG/ MIN)
     Route: 065
  9. DOPAMINE [Concomitant]
     Active Substance: DOPAMINE HYDROCHLORIDE
     Dosage: UNK (UP TO 7.5 ?G/KG/MIN)
     Route: 065
  10. PHENYTOIN [Concomitant]
     Active Substance: PHENYTOIN
     Indication: Generalised tonic-clonic seizure
     Dosage: UNK
     Route: 065
  11. PHENOBARBITAL [Concomitant]
     Active Substance: PHENOBARBITAL
     Indication: Generalised tonic-clonic seizure
     Dosage: UNK
     Route: 065
  12. MIDAZOLAM [Concomitant]
     Active Substance: MIDAZOLAM
     Indication: Generalised tonic-clonic seizure
     Dosage: UNK
     Route: 065

REACTIONS (1)
  - Toxicity to various agents [Unknown]
